FAERS Safety Report 8725466 (Version 4)
Quarter: 2014Q1

REPORT INFORMATION
  Report Type: Spontaneous
  Country: CA (occurrence: CA)
  Receive Date: 20120815
  Receipt Date: 20140131
  Transmission Date: 20141002
  Serious: Yes (Hospitalization, Other)
  Sender: FDA-Public Use
  Company Number: CA-ROCHE-1098401

PATIENT
  Age: 44 Year
  Sex: Female

DRUGS (4)
  1. XOLAIR [Suspect]
     Indication: ASTHMA
     Route: 058
     Dates: start: 20091030
  2. XOLAIR [Suspect]
     Route: 058
     Dates: start: 20091113
  3. PREDNISONE [Concomitant]
     Route: 042
     Dates: start: 20111116
  4. PREDNISONE [Concomitant]
     Route: 048

REACTIONS (17)
  - Asthma [Unknown]
  - Loss of consciousness [Unknown]
  - Palpitations [Recovered/Resolved]
  - Feeling abnormal [Unknown]
  - Dysphonia [Unknown]
  - Hypertension [Unknown]
  - Dry throat [Unknown]
  - Feeling jittery [Unknown]
  - Tremor [Unknown]
  - Chest discomfort [Unknown]
  - Heart rate abnormal [Unknown]
  - Chest pain [Unknown]
  - Anxiety [Unknown]
  - Insomnia [Unknown]
  - Body temperature decreased [Unknown]
  - Dyspnoea [Unknown]
  - Cardiac disorder [Unknown]
